FAERS Safety Report 6945190-1 (Version None)
Quarter: 2010Q3

REPORT INFORMATION
  Report Type: 
  Country: None (occurrence: None)
  Receive Date: 20100827
  Receipt Date: 20100819
  Transmission Date: 20110219
  Serious: Yes (Other)
  Sender: FDA-Public Use
  Company Number: NL-AMGEN-QUU432586

PATIENT
  Sex: Female

DRUGS (4)
  1. NEULASTA [Suspect]
     Indication: CHEMOTHERAPY
     Route: 065
  2. ONDANSETRON [Concomitant]
  3. MAGNESIUM HYDROXIDE TAB [Concomitant]
  4. UNSPECIFIED ANTINEOPLASTIC AGENT [Concomitant]

REACTIONS (3)
  - FATIGUE [None]
  - HEADACHE [None]
  - TRANSIENT ISCHAEMIC ATTACK [None]
